FAERS Safety Report 5086337-4 (Version None)
Quarter: 2006Q3

REPORT INFORMATION
  Report Type: 
  Country: None (occurrence: None)
  Receive Date: 20060823
  Receipt Date: 20060703
  Transmission Date: 20061208
  Serious: Yes (Other)
  Sender: FDA-Public Use
  Company Number: US-SP-2006-01633

PATIENT
  Age: 17 Year
  Sex: Female

DRUGS (3)
  1. TUBERSOL [Suspect]
     Indication: TUBERCULIN TEST
     Route: 023
     Dates: start: 20060703
  2. MENACTRA [Suspect]
     Indication: IMMUNISATION
     Route: 030
     Dates: start: 20060703
  3. BIRTH CONTROL PILLS [Concomitant]

REACTIONS (4)
  - HYPOTENSION [None]
  - LOSS OF CONSCIOUSNESS [None]
  - PALLOR [None]
  - SYNCOPE VASOVAGAL [None]
